FAERS Safety Report 8297010-3 (Version None)
Quarter: 2012Q2

REPORT INFORMATION
  Report Type: 
  Country: None (occurrence: None)
  Receive Date: 20120419
  Receipt Date: 20120411
  Transmission Date: 20120825
  Serious: No
  Sender: FDA-Public Use
  Company Number: US-BIOGENIDEC-2012BI012646

PATIENT
  Sex: Male

DRUGS (2)
  1. AVONEX [Suspect]
     Indication: MULTIPLE SCLEROSIS
     Route: 030
     Dates: start: 19990126, end: 20080126
  2. AVONEX [Suspect]
     Route: 030
     Dates: start: 20090123, end: 20111101

REACTIONS (1)
  - MEMORY IMPAIRMENT [None]
